FAERS Safety Report 8792902 (Version 1)
Quarter: 2012Q4

REPORT INFORMATION
  Report Type: 
  Country: GB (occurrence: GB)
  Receive Date: 20120918
  Receipt Date: 20120918
  Transmission Date: 20130627
  Serious: Yes (Other)
  Sender: FDA-Public Use
  Company Number: GB-ASTRAZENECA-2012SE71586

PATIENT
  Age: 64 Year
  Sex: Female

DRUGS (5)
  1. OMEPRAZOLE [Suspect]
     Indication: PROPHYLAXIS AGAINST GASTROINTESTINAL ULCER
     Route: 048
  2. BETAHISTINE [Concomitant]
     Indication: MENIERE^S DISEASE
  3. CITALOPRAM [Concomitant]
     Indication: ANALGESIC THERAPY
  4. CODEINE [Concomitant]
     Indication: ANALGESIC THERAPY
  5. NAPROXEN [Concomitant]
     Indication: ANALGESIC THERAPY

REACTIONS (2)
  - Foot fracture [Not Recovered/Not Resolved]
  - Osteoporosis [Not Recovered/Not Resolved]
